FAERS Safety Report 8433593 (Version 3)
Quarter: 2012Q4

REPORT INFORMATION
  Report Type: 
  Country: US (occurrence: US)
  Receive Date: 20120229
  Receipt Date: 20121128
  Transmission Date: 20130627
  Serious: Yes (Hospitalization, Other)
  Sender: FDA-Public Use
  Company Number: PHEH2012US004060

PATIENT
  Age: 85 Year
  Sex: Female

DRUGS (2)
  1. TASIGNA [Suspect]
     Indication: CHRONIC MYELOID LEUKAEMIA
     Dosage: 200 mg, QD
     Route: 048
     Dates: start: 201006
  2. TASIGNA [Suspect]
     Dosage: 400 mg, BID
     Route: 048
     Dates: start: 20120201

REACTIONS (5)
  - Kidney infection [Unknown]
  - Urosepsis [Recovered/Resolved]
  - Nasopharyngitis [Unknown]
  - Cough [Unknown]
  - Alopecia [Unknown]
